FAERS Safety Report 9656807 (Version 1)
Quarter: 2013Q4

REPORT INFORMATION
  Report Type: Report from Study
  Country: GB (occurrence: GB)
  Receive Date: 20131030
  Receipt Date: 20131030
  Transmission Date: 20140711
  Serious: Yes (Other)
  Sender: FDA-Public Use
  Company Number: GB-ASTRAZENECA-2013SE77699

PATIENT
  Age: 85 Year
  Sex: Female

DRUGS (3)
  1. PROPOFOL [Suspect]
     Indication: SEDATION
     Route: 042
  2. FUROSEMIDE [Concomitant]
     Indication: FLUID RETENTION
  3. MORPHINE [Concomitant]
     Route: 042

REACTIONS (1)
  - Oxygen saturation decreased [Recovering/Resolving]
